FAERS Safety Report 7040494-9 (Version None)
Quarter: 2010Q4

REPORT INFORMATION
  Report Type: 
  Country: None (occurrence: None)
  Receive Date: 20101012
  Receipt Date: 20100927
  Transmission Date: 20110411
  Serious: Yes (Hospitalization)
  Sender: FDA-Public Use
  Company Number: PHHY2010BE63274

PATIENT
  Sex: Male

DRUGS (3)
  1. RILATINE MR [Suspect]
     Dosage: 20 MG, UNK
     Dates: start: 20090701, end: 20100301
  2. RITALIN [Suspect]
     Dosage: 10 MG OCCASIONALLY
     Route: 048
     Dates: start: 20090701
  3. RITALIN [Suspect]
     Dosage: 2 DF, BID
     Route: 048
     Dates: start: 20100301

REACTIONS (2)
  - CHEST PAIN [None]
  - PERICARDITIS [None]
